FAERS Safety Report 4683607-6 (Version None)
Quarter: 2005Q2

REPORT INFORMATION
  Report Type: 
  Country: None (occurrence: None)
  Receive Date: 20050607
  Receipt Date: 20050531
  Transmission Date: 20051028
  Serious: Yes (Other)
  Sender: FDA-Public Use
  Company Number: PHFR2005GB02012

PATIENT
  Age: 34 Year
  Sex: 0

DRUGS (1)
  1. TERBINAFINE [Suspect]
     Indication: BODY TINEA
     Dosage: 250 MG, QD
     Route: 048
     Dates: start: 20050419, end: 20050510

REACTIONS (1)
  - DEPRESSIVE SYMPTOM [None]
